FAERS Safety Report 19466247 (Version 1)
Quarter: 2021Q2

REPORT INFORMATION
  Report Type: Spontaneous
  Country: US (occurrence: US)
  Receive Date: 20210627
  Receipt Date: 20210627
  Transmission Date: 20210717
  Serious: No
  Sender: FDA-Public Use
  Company Number: US-SA-2021SA208666

PATIENT
  Sex: Female

DRUGS (1)
  1. DUPIXENT [Suspect]
     Active Substance: DUPILUMAB
     Indication: STASIS DERMATITIS
     Dosage: 300 MG, QOW
     Route: 058
     Dates: end: 202106

REACTIONS (1)
  - Drug ineffective for unapproved indication [Unknown]
